FAERS Safety Report 7380118-4 (Version None)
Quarter: 2011Q1

REPORT INFORMATION
  Report Type: 
  Country: None (occurrence: None)
  Receive Date: 20110329
  Receipt Date: 20100519
  Transmission Date: 20110831
  Serious: No
  Sender: FDA-Public Use
  Company Number: US-MYLANLABS-2010S1008199

PATIENT
  Age: 72 Year
  Sex: Female

DRUGS (7)
  1. ESTRADIOL [Suspect]
     Indication: HOT FLUSH
     Dosage: CHANGED PATCHES QW
     Route: 062
     Dates: start: 20060101, end: 20100501
  2. OMEPRAZOLE [Concomitant]
  3. ZOCOR [Concomitant]
  4. ESTRADIOL [Suspect]
     Route: 062
     Dates: start: 20100510
  5. ESTRADIOL [Suspect]
     Route: 062
     Dates: start: 20100510
  6. ESTRADIOL [Suspect]
     Indication: HORMONE REPLACEMENT THERAPY
     Dosage: CHANGED PATCHES QW
     Route: 062
     Dates: start: 20060101, end: 20100501
  7. PAROXETINE HCL [Concomitant]

REACTIONS (5)
  - APPLICATION SITE ERYTHEMA [None]
  - APPLICATION SITE VESICLES [None]
  - APPLICATION SITE SCAR [None]
  - APPLICATION SITE PAIN [None]
  - APPLICATION SITE BURN [None]
